FAERS Safety Report 7877830-7 (Version None)
Quarter: 2011Q4

REPORT INFORMATION
  Report Type: 
  Country: None (occurrence: None)
  Receive Date: 20111031
  Receipt Date: 20111031
  Transmission Date: 20120403
  Serious: No
  Sender: FDA-Public Use
  Company Number: None

PATIENT
  Age: 36 Year
  Sex: Female
  Weight: 58.059 kg

DRUGS (1)
  1. BOTOX [Suspect]
     Indication: MIGRAINE
     Dosage: 200
     Route: 030
     Dates: start: 20111017, end: 20111017

REACTIONS (8)
  - FATIGUE [None]
  - VISUAL IMPAIRMENT [None]
  - NECK PAIN [None]
  - NAUSEA [None]
  - EAR PAIN [None]
  - COUGH [None]
  - ANXIETY [None]
  - HEADACHE [None]
